FAERS Safety Report 5215763-5 (Version None)
Quarter: 2007Q1

REPORT INFORMATION
  Report Type: 
  Country: None (occurrence: None)
  Receive Date: 20070118
  Receipt Date: 20070112
  Transmission Date: 20070707
  Serious: Yes (Hospitalization)
  Sender: FDA-Public Use
  Company Number: 163-20785-06121258

PATIENT
  Age: 85 Year
  Sex: Female

DRUGS (4)
  1. THALOMID [Suspect]
     Indication: MULTIPLE MYELOMA
     Dosage: 50 MG, 1 IN 1 D, ORAL
     Route: 048
     Dates: start: 20040501
  2. LASIX [Concomitant]
  3. PRAVACHOL [Concomitant]
  4. EVISTA [Concomitant]

REACTIONS (5)
  - FALL [None]
  - GAIT DISTURBANCE [None]
  - LOWER LIMB FRACTURE [None]
  - OSTEOARTHRITIS [None]
  - SPINAL OSTEOARTHRITIS [None]
